FAERS Safety Report 17160438 (Version 1)
Quarter: 2019Q4

REPORT INFORMATION
  Report Type: Spontaneous
  Country: FR (occurrence: FR)
  Receive Date: 20191216
  Receipt Date: 20191216
  Transmission Date: 20200122
  Serious: Yes (Death, Life-Threatening, Hospitalization, Other)
  Sender: FDA-Public Use
  Company Number: FR-MYLANLABS-2019M1122971

PATIENT
  Age: 64 Year
  Sex: Female
  Weight: 72 kg

DRUGS (7)
  1. LYTOS [Concomitant]
     Active Substance: CLODRONATE DISODIUM
     Indication: PRODUCT USED FOR UNKNOWN INDICATION
     Dosage: 1040 MILLIGRAM, QD(1040 MG, QD)
     Route: 048
     Dates: start: 20110119, end: 20160803
  2. EXEMESTANE. [Suspect]
     Active Substance: EXEMESTANE
     Dosage: 25 MG, QD
     Route: 065
     Dates: start: 20160309, end: 20160803
  3. AFINITOR [Suspect]
     Active Substance: EVEROLIMUS
     Dosage: 5 MILLIGRAM, QD (5 MG, QD)
     Route: 048
     Dates: start: 20160309, end: 20160727
  4. PARACETAMOL [Concomitant]
     Active Substance: ACETAMINOPHEN
     Indication: PRODUCT USED FOR UNKNOWN INDICATION
     Dosage: 500MILLIGRAM(500 MG,PRN(ON DEMAND))
     Route: 065
     Dates: start: 20160414, end: 20160803
  5. EXEMESTANE. [Suspect]
     Active Substance: EXEMESTANE
     Indication: BREAST CANCER
     Dosage: 25 MG, QD
     Route: 065
     Dates: start: 20151105, end: 20160224
  6. AFINITOR [Suspect]
     Active Substance: EVEROLIMUS
     Indication: BREAST CANCER METASTATIC
     Dosage: 5 MILLIGRAM, QD(5 MG, QD)
     Route: 048
     Dates: start: 20151105, end: 20160224
  7. AROMASINE [Concomitant]
     Active Substance: EXEMESTANE
     Indication: PRODUCT USED FOR UNKNOWN INDICATION
     Dosage: 25 MILLIGRAM, QD (25 MG, QD)
     Route: 048
     Dates: start: 20151105, end: 20160803

REACTIONS (27)
  - Metastases to peritoneum [Not Recovered/Not Resolved]
  - Hyponatraemia [Unknown]
  - Lung disorder [Fatal]
  - Cholestasis [Fatal]
  - Pleural effusion [Not Recovered/Not Resolved]
  - Alveolar lung disease [Unknown]
  - Scab [Recovered/Resolved]
  - Crepitations [Unknown]
  - Pulmonary oedema [Not Recovered/Not Resolved]
  - Hepatic failure [Fatal]
  - Epistaxis [Recovered/Resolved]
  - Metastases to pleura [Not Recovered/Not Resolved]
  - Peritonitis [Not Recovered/Not Resolved]
  - Decreased appetite [Unknown]
  - Stomatitis [Recovered/Resolved]
  - Haemothorax [Unknown]
  - Abdominal pain [Unknown]
  - Multiple organ dysfunction syndrome [Fatal]
  - Inflammation [Unknown]
  - Oedema peripheral [Not Recovered/Not Resolved]
  - Renal failure [Fatal]
  - Skin irritation [Recovered/Resolved]
  - Septic shock [Not Recovered/Not Resolved]
  - Hyperkalaemia [Unknown]
  - Weight decreased [Recovered/Resolved]
  - Dyspnoea [Not Recovered/Not Resolved]
  - Abdominal pain upper [Recovered/Resolved]

NARRATIVE: CASE EVENT DATE: 20151115
